FAERS Safety Report 4595960-2 (Version None)
Quarter: 2005Q1

REPORT INFORMATION
  Report Type: 
  Country: None (occurrence: None)
  Receive Date: 20050302
  Receipt Date: 20050222
  Transmission Date: 20050727
  Serious: Yes (Hospitalization)
  Sender: FDA-Public Use
  Company Number: US-JNJFOC-20050205861

PATIENT
  Sex: Male

DRUGS (1)
  1. REGRANEX [Suspect]
     Indication: DRUG USE FOR UNKNOWN INDICATION
     Dosage: DOSE REGIMEN AND THERAPY DATES UNKNOWN
     Route: 065

REACTIONS (1)
  - HOSPITALISATION [None]
